FAERS Safety Report 24467938 (Version 1)
Quarter: 2024Q4

REPORT INFORMATION
  Report Type: Spontaneous
  Country: US (occurrence: US)
  Receive Date: 20241018
  Receipt Date: 20241018
  Transmission Date: 20250114
  Serious: No
  Sender: Phathom Pharmaceuticals
  Company Number: US-PHATHOM PHARMACEUTICALS INC.-2024PHT00806

PATIENT
  Age: 73 Year
  Sex: Female
  Weight: 63.503 kg

DRUGS (3)
  1. VOQUEZNA [Suspect]
     Active Substance: VONOPRAZAN FUMARATE
     Indication: Dyspepsia
     Dosage: 20 MG
     Route: 048
     Dates: start: 202408
  2. UNSPECIFIED BP MEDICATIONS [Concomitant]
  3. UNSPECIFIED INGREDIENT [Concomitant]
     Active Substance: UNSPECIFIED INGREDIENT

REACTIONS (6)
  - Drug ineffective [Not Recovered/Not Resolved]
  - Malaise [Not Recovered/Not Resolved]
  - Abdominal distension [Not Recovered/Not Resolved]
  - Abdominal pain upper [Not Recovered/Not Resolved]
  - Nausea [Not Recovered/Not Resolved]
  - Unevaluable event [Not Recovered/Not Resolved]

NARRATIVE: CASE EVENT DATE: 20240801
